FAERS Safety Report 5963325-4 (Version None)
Quarter: 2008Q4

REPORT INFORMATION
  Report Type: 
  Country: None (occurrence: None)
  Receive Date: 20081124
  Receipt Date: 20081117
  Transmission Date: 20090506
  Serious: Yes (Hospitalization)
  Sender: FDA-Public Use
  Company Number: A0731233A

PATIENT
  Age: 41 Year
  Sex: Female
  Weight: 95.5 kg

DRUGS (8)
  1. AVANDIA [Suspect]
     Dosage: 8MG PER DAY
     Route: 048
     Dates: start: 19990901, end: 20030101
  2. LASIX [Concomitant]
  3. METOPROLOL [Concomitant]
  4. NOVOLOG [Concomitant]
  5. LEVEMIR [Concomitant]
  6. LANTUS [Concomitant]
  7. HUMALOG [Concomitant]
  8. REGULAR INSULIN [Concomitant]

REACTIONS (4)
  - CARDIAC FAILURE CONGESTIVE [None]
  - INJURY [None]
  - MYOCARDIAL INFARCTION [None]
  - PAIN [None]
